FAERS Safety Report 9024136 (Version 4)
Quarter: 2013Q2

REPORT INFORMATION
  Report Type: Spontaneous
  Country: US (occurrence: US)
  Receive Date: 20130122
  Receipt Date: 20130422
  Transmission Date: 20140414
  Serious: No
  Sender: FDA-Public Use
  Company Number: US-BIOGENIDEC-2013BI004492

PATIENT
  Age: 53 Year
  Sex: Female

DRUGS (15)
  1. TYSABRI [Suspect]
     Indication: MULTIPLE SCLEROSIS
     Route: 042
     Dates: start: 20080902, end: 20080903
  2. TYSABRI [Suspect]
     Indication: MULTIPLE SCLEROSIS
     Route: 042
     Dates: start: 20120322, end: 20121129
  3. TYSABRI [Suspect]
     Indication: MULTIPLE SCLEROSIS
     Route: 042
  4. TRAMADOL [Concomitant]
     Indication: HEADACHE
  5. TRAMADOL [Concomitant]
     Indication: FACIAL PAIN
  6. TRAMADOL [Concomitant]
     Indication: PAIN IN EXTREMITY
  7. BACLOFEN [Concomitant]
     Indication: HEADACHE
  8. BACLOFEN [Concomitant]
     Indication: FACIAL PAIN
  9. BACLOFEN [Concomitant]
     Indication: PAIN IN EXTREMITY
  10. SOMA [Concomitant]
     Indication: HEADACHE
  11. SOMA [Concomitant]
     Indication: FACIAL PAIN
  12. SOMA [Concomitant]
     Indication: PAIN IN EXTREMITY
  13. VALIUM [Concomitant]
     Indication: HEADACHE
  14. VALIUM [Concomitant]
     Indication: FACIAL PAIN
  15. VALIUM [Concomitant]
     Indication: PAIN IN EXTREMITY

REACTIONS (24)
  - Dry skin [Recovered/Resolved with Sequelae]
  - Hair colour changes [Recovered/Resolved]
  - Eczema [Recovered/Resolved]
  - Memory impairment [Not Recovered/Not Resolved]
  - Cognitive disorder [Not Recovered/Not Resolved]
  - Sleep disorder [Not Recovered/Not Resolved]
  - Pain [Recovered/Resolved]
  - Temperature intolerance [Not Recovered/Not Resolved]
  - Furuncle [Not Recovered/Not Resolved]
  - Melanocytic naevus [Not Recovered/Not Resolved]
  - Decreased appetite [Recovered/Resolved]
  - Musculoskeletal disorder [Not Recovered/Not Resolved]
  - Depressed mood [Not Recovered/Not Resolved]
  - Optic neuritis [Not Recovered/Not Resolved]
  - Feeling hot [Not Recovered/Not Resolved]
  - Pain in extremity [Not Recovered/Not Resolved]
  - Stress [Not Recovered/Not Resolved]
  - Headache [Recovered/Resolved]
  - Asthenia [Recovered/Resolved]
  - Lethargy [Not Recovered/Not Resolved]
  - Arthralgia [Not Recovered/Not Resolved]
  - Malaise [Not Recovered/Not Resolved]
  - Multiple sclerosis [Recovered/Resolved]
  - Fatigue [Recovered/Resolved]
